FAERS Safety Report 4920696-5 (Version None)
Quarter: 2006Q1

REPORT INFORMATION
  Report Type: 
  Country: None (occurrence: None)
  Receive Date: 20060113
  Receipt Date: 20051012
  Transmission Date: 20060701
  Serious: No
  Sender: FDA-Public Use
  Company Number: 2005SP003004

PATIENT
  Age: 63 Year
  Sex: Male
  Weight: 124.7392 kg

DRUGS (5)
  1. LUNESTA [Suspect]
     Indication: INSOMNIA
     Dosage: 2 MG; ORAL
     Route: 048
     Dates: start: 20050101, end: 20050101
  2. WELLBUTRIN [Concomitant]
  3. PAXIL [Concomitant]
  4. NEURONTIN [Concomitant]
  5. DESYREL [Concomitant]

REACTIONS (2)
  - DRUG INEFFECTIVE [None]
  - INITIAL INSOMNIA [None]
